FAERS Safety Report 6682608-6 (Version None)
Quarter: 2010Q2

REPORT INFORMATION
  Report Type: 
  Country: None (occurrence: None)
  Receive Date: 20100415
  Receipt Date: 20100401
  Transmission Date: 20101027
  Serious: Yes (Hospitalization, Other)
  Sender: FDA-Public Use
  Company Number: PHEH2006US01255

PATIENT
  Sex: Male
  Weight: 80.725 kg

DRUGS (10)
  1. AREDIA [Suspect]
     Indication: METASTASES TO BONE
     Dosage: UNK,UNK
     Dates: start: 20020801
  2. ZOMETA [Suspect]
     Dosage: 4MG IV Q4WKS
     Dates: start: 20041001
  3. PROCRIT [Concomitant]
     Dosage: 40,000 UNITS WEEKLY
  4. IRON SUPPLEMENTS [Concomitant]
     Dosage: 325 MG, QD
  5. NEURONTIN [Concomitant]
     Dosage: 600 MG, BID
  6. FOLIC ACID [Concomitant]
     Dosage: 1 MG, QD
  7. BUMEX [Concomitant]
     Dosage: 1 MG, UNK
  8. NAPROXEN [Concomitant]
     Dosage: 500 MG, BID
  9. K-DUR [Concomitant]
     Dosage: 20 MEQ, BID
  10. OXYCONTIN [Concomitant]
     Dosage: UNK, BID

REACTIONS (40)
  - ABSCESS JAW [None]
  - ACTINOMYCOSIS [None]
  - BIOPSY [None]
  - BONE DISORDER [None]
  - BONE EROSION [None]
  - BONE FRAGMENTATION [None]
  - BUNDLE BRANCH BLOCK RIGHT [None]
  - COMPUTERISED TOMOGRAM ABNORMAL [None]
  - DEBRIDEMENT [None]
  - DENTAL CARE [None]
  - EXOSTOSIS [None]
  - FALL [None]
  - FISTULA [None]
  - GINGIVAL DISORDER [None]
  - HIP ARTHROPLASTY [None]
  - HYPERBARIC OXYGEN THERAPY [None]
  - HYPOAESTHESIA [None]
  - IMPAIRED HEALING [None]
  - INFLAMMATION [None]
  - LEUKOPENIA [None]
  - LOOSE TOOTH [None]
  - MUCOSAL HAEMORRHAGE [None]
  - MULTIPLE MYELOMA [None]
  - ORAL DISORDER [None]
  - OSTEOLYSIS [None]
  - OSTEONECROSIS [None]
  - PAIN IN JAW [None]
  - PARAPROTEINAEMIA [None]
  - PATHOLOGICAL FRACTURE [None]
  - PHYSIOTHERAPY [None]
  - PNEUMONIA [None]
  - RADIOTHERAPY [None]
  - SINUSITIS [None]
  - SWELLING [None]
  - THROMBOCYTOPENIA [None]
  - TOOTH EXTRACTION [None]
  - TOOTHACHE [None]
  - WOUND DEHISCENCE [None]
  - WOUND DRAINAGE [None]
  - X-RAY ABNORMAL [None]
